FAERS Safety Report 9115406 (Version 1)
Quarter: 2013Q1

REPORT INFORMATION
  Report Type: Spontaneous
  Country: US (occurrence: None)
  Receive Date: 20130221
  Receipt Date: 20130221
  Transmission Date: 20140127
  Serious: Yes (Other)
  Sender: FDA-Public Use
  Company Number: None

PATIENT
  Age: 76 Year
  Sex: Female

DRUGS (12)
  1. PROMACTA [Suspect]
     Dosage: PROMACTA 50-150MG, QD, ORALLY
     Route: 048
     Dates: start: 20121029, end: 20130201
  2. PROMACTA [Concomitant]
  3. ZESTRIL [Concomitant]
  4. SENSIPAR [Concomitant]
  5. PREDNISONE [Concomitant]
  6. MEGACE [Concomitant]
  7. QVAR [Concomitant]
  8. AMINOCAPROIC ACID [Concomitant]
  9. ZOCOR [Concomitant]
  10. ZYLOPRIM [Concomitant]
  11. FOSAMAX [Concomitant]
  12. COLCHICINE [Concomitant]

REACTIONS (1)
  - Drug ineffective [None]
